FAERS Safety Report 10307646 (Version 1)
Quarter: 2014Q3

REPORT INFORMATION
  Report Type: Spontaneous
  Country: US (occurrence: None)
  Receive Date: 20140714
  Receipt Date: 20140714
  Transmission Date: 20150326
  Serious: No
  Sender: FDA-Public Use
  Company Number: None

PATIENT
  Age: 33 Year
  Sex: Female

DRUGS (1)
  1. SULFAMETHOXAZOLE AND TRIMETHOPRIM [Suspect]
     Active Substance: SULFAMETHOXAZOLE\TRIMETHOPRIM
     Dates: start: 20130131, end: 20130209

REACTIONS (13)
  - Aspartate aminotransferase increased [None]
  - Pregnancy [None]
  - Hepatic function abnormal [None]
  - Blood alkaline phosphatase increased [None]
  - Pyrexia [None]
  - Chromaturia [None]
  - Asthenia [None]
  - Smooth muscle antibody positive [None]
  - Drug-induced liver injury [None]
  - Hepatotoxicity [None]
  - Blood bilirubin increased [None]
  - Alanine aminotransferase increased [None]
  - Maternal exposure before pregnancy [None]

NARRATIVE: CASE EVENT DATE: 20130304
